FAERS Safety Report 6725910-1 (Version None)
Quarter: 2010Q2

REPORT INFORMATION
  Report Type: 
  Country: None (occurrence: None)
  Receive Date: 20100514
  Receipt Date: 20100504
  Transmission Date: 20101027
  Serious: Yes (Hospitalization)
  Sender: FDA-Public Use
  Company Number: US-JNJCH-2010011329

PATIENT
  Age: 53 Year
  Sex: Female
  Weight: 80.7 kg

DRUGS (2)
  1. BENADRYL CHILDREN'S ALLERGY FASTMELT [Suspect]
     Indication: SINUSITIS
     Dosage: TEXT:4 TABLETS ONCE
     Route: 048
     Dates: start: 20100422, end: 20100422
  2. CEFDINIR [Suspect]
     Indication: HYPERSENSITIVITY
     Dosage: TEXT:ONE 300MG CAP
     Route: 048

REACTIONS (2)
  - CONVULSION [None]
  - NEPHROLITHIASIS [None]
